FAERS Safety Report 9194031 (Version 2)
Quarter: 2013Q2

REPORT INFORMATION
  Report Type: Spontaneous
  Country: US (occurrence: US)
  Receive Date: 20130327
  Receipt Date: 20130517
  Transmission Date: 20140414
  Serious: Yes (Other)
  Sender: FDA-Public Use
  Company Number: US-ASTRAZENECA-2013SE15618

PATIENT
  Age: 19682 Day
  Sex: Female
  Weight: 122.5 kg

DRUGS (2)
  1. SYMBICORT PMDI [Suspect]
     Indication: ASTHMA
     Dosage: 320 MCG, BID
     Route: 055
     Dates: start: 2009
  2. SYMBICORT PMDI [Suspect]
     Indication: ASTHMA
     Dosage: 160/4.5, TWO PUFFS TWO TIMES A DAY
     Route: 055

REACTIONS (4)
  - Pharyngeal injury [Recovered/Resolved]
  - Vomiting [Recovered/Resolved]
  - Cough [Recovered/Resolved]
  - Nausea [Recovered/Resolved]
